FAERS Safety Report 11705419 (Version 1)
Quarter: 2015Q4

REPORT INFORMATION
  Report Type: Report from Study
  Country: ES (occurrence: ES)
  Receive Date: 20151106
  Receipt Date: 20151106
  Transmission Date: 20160304
  Serious: Yes (Other)
  Sender: FDA-Public Use
  Company Number: ES-MYLANLABS-2015M1038075

PATIENT

DRUGS (2)
  1. LEVOBUPIVACAINE [Suspect]
     Active Substance: LEVOBUPIVACAINE
     Indication: INDUCTION OF ANAESTHESIA
     Dosage: INJECTED 14 ML OF SOLUTION CONTAINING 10ML OF 0.75% LEVOBUPIVACAINE AND 10 ML OF 2% LIDOCAINE
     Route: 008
  2. LIDOCAINE. [Suspect]
     Active Substance: LIDOCAINE
     Indication: INDUCTION OF ANAESTHESIA
     Dosage: INJECTED 14 ML OF SOLUTION CONTAINING 10ML OF 0.75% LEVOBUPIVACAINE AND 10 ML OF 2% LIDOCAINE
     Route: 008

REACTIONS (2)
  - Horner^s syndrome [Recovered/Resolved]
  - Maternal exposure during delivery [Recovered/Resolved]
